FAERS Safety Report 6775323-1 (Version None)
Quarter: 2010Q2

REPORT INFORMATION
  Report Type: 
  Country: None (occurrence: None)
  Receive Date: 20100615
  Receipt Date: 20100615
  Transmission Date: 20101027
  Serious: Yes (Other)
  Sender: FDA-Public Use
  Company Number: None

PATIENT
  Age: 83 Year
  Sex: Female

DRUGS (1)
  1. FERAHEME [Suspect]
     Indication: IRON DEFICIENCY ANAEMIA
     Dosage: 510 MG ONCE IV BOLUS
     Route: 040
     Dates: start: 20100526, end: 20100526

REACTIONS (8)
  - BLOOD PRESSURE SYSTOLIC INCREASED [None]
  - COUGH [None]
  - DYSPNOEA [None]
  - ERYTHEMA [None]
  - MALAISE [None]
  - NAUSEA [None]
  - PAIN [None]
  - SENSATION OF PRESSURE [None]
